FAERS Safety Report 9248428 (Version 2)
Quarter: 2019Q1

REPORT INFORMATION
  Report Type: Report from Study
  Country: US (occurrence: US)
  Receive Date: 20130423
  Receipt Date: 20190118
  Transmission Date: 20190418
  Serious: Yes (Other)
  Sender: FDA-Public Use
  Company Number: US-SANOFI-AVENTIS-2013SA034555

PATIENT
  Age: 52 Year
  Sex: Female

DRUGS (2)
  1. TERIFLUNOMIDE. [Suspect]
     Active Substance: TERIFLUNOMIDE
     Indication: MULTIPLE SCLEROSIS
     Dosage: 7 MG, QD
     Route: 048
     Dates: start: 20130314
  2. TERIFLUNOMIDE. [Suspect]
     Active Substance: TERIFLUNOMIDE
     Dosage: 7 MG, QD
     Route: 048

REACTIONS (9)
  - Insomnia [Unknown]
  - Back pain [Unknown]
  - Pain [Unknown]
  - Optic neuritis [Recovering/Resolving]
  - Fatigue [Unknown]
  - Visual impairment [Unknown]
  - Eye disorder [Not Recovered/Not Resolved]
  - Product dose omission [Unknown]
  - Strabismus [Unknown]

NARRATIVE: CASE EVENT DATE: 201610
